FAERS Safety Report 14373536 (Version 5)
Quarter: 2019Q3

REPORT INFORMATION
  Report Type: Spontaneous
  Country: FR (occurrence: FR)
  Receive Date: 20180110
  Receipt Date: 20190924
  Transmission Date: 20191004
  Serious: Yes (Hospitalization, Other)
  Sender: FDA-Public Use
  Company Number: FR-IPSEN BIOPHARMACEUTICALS, INC.-2018-00471

PATIENT
  Age: 63 Year
  Sex: Female
  Weight: 71 kg

DRUGS (24)
  1. DIFFU K [Concomitant]
     Active Substance: POTASSIUM CHLORIDE
  2. PEGYLATED LIPOSOMAL IRINOTECAN [Suspect]
     Active Substance: IRINOTECAN HYDROCHLORIDE
     Indication: COLORECTAL CANCER METASTATIC
     Dosage: 330 MG
     Route: 041
     Dates: start: 20140918, end: 20140918
  3. G-CSF [Concomitant]
     Active Substance: GRANULOCYTE COLONY-STIMULATING FACTOR NOS
     Dates: start: 20140922, end: 20141024
  4. SOLUPRED [Concomitant]
     Dates: start: 20140918, end: 201411
  5. METOCLOPRAMIDE HYDROCHLORIDE. [Concomitant]
     Active Substance: METOCLOPRAMIDE HYDROCHLORIDE
  6. PEGYLATED LIPOSOMAL IRINOTECAN [Suspect]
     Active Substance: IRINOTECAN HYDROCHLORIDE
     Indication: OFF LABEL USE
     Dosage: 320 MG
     Route: 041
     Dates: start: 20141113
  7. 5-FU [Suspect]
     Active Substance: FLUOROURACIL
     Route: 040
     Dates: start: 20140918, end: 20140918
  8. AFLIBERCEPT [Suspect]
     Active Substance: AFLIBERCEPT
     Indication: COLORECTAL CANCER METASTATIC
     Route: 041
     Dates: start: 20140918, end: 20140918
  9. ATARAX [Concomitant]
     Active Substance: HYDROXYZINE HYDROCHLORIDE
  10. LEUCOVORIN. [Suspect]
     Active Substance: LEUCOVORIN
     Indication: COLORECTAL CANCER METASTATIC
     Route: 041
     Dates: start: 20140918, end: 20140918
  11. 5-FU [Suspect]
     Active Substance: FLUOROURACIL
     Indication: COLORECTAL CANCER METASTATIC
     Route: 041
     Dates: start: 20140918, end: 20140918
  12. XANAX [Concomitant]
     Active Substance: ALPRAZOLAM
  13. PRIMPERAN [Concomitant]
     Active Substance: METOCLOPRAMIDE HYDROCHLORIDE
  14. 5-FU [Suspect]
     Active Substance: FLUOROURACIL
     Route: 041
     Dates: start: 20141113, end: 20141113
  15. AFLIBERCEPT [Suspect]
     Active Substance: AFLIBERCEPT
     Indication: COLORECTAL CANCER METASTATIC
     Route: 041
     Dates: start: 20141113, end: 20141113
  16. FOLINIC ACID [Concomitant]
     Active Substance: LEUCOVORIN
  17. ALPRAZOLAM. [Concomitant]
     Active Substance: ALPRAZOLAM
  18. LEUCOVORIN. [Suspect]
     Active Substance: LEUCOVORIN
     Route: 041
     Dates: start: 20141113, end: 20141113
  19. 5-FU [Suspect]
     Active Substance: FLUOROURACIL
     Route: 040
     Dates: start: 20141113, end: 20141113
  20. CALCIUM FOLINATE [Suspect]
     Active Substance: LEUCOVORIN CALCIUM
     Indication: COLORECTAL CANCER METASTATIC
     Dosage: 600 MG, QCY
     Route: 041
  21. INEXIUM [Concomitant]
     Active Substance: ESOMEPRAZOLE
  22. EMEND [Concomitant]
     Active Substance: APREPITANT
  23. LOPERAMIDE [Concomitant]
     Active Substance: LOPERAMIDE
     Dates: start: 20140925, end: 201410
  24. CALCIUM FOLINATE [Suspect]
     Active Substance: LEUCOVORIN CALCIUM
     Dosage: 600 MG, QCY
     Route: 041

REACTIONS (4)
  - Gastrooesophageal reflux disease [Recovered/Resolved]
  - Pulmonary embolism [Not Recovered/Not Resolved]
  - Pyrexia [Unknown]
  - Off label use [Unknown]

NARRATIVE: CASE EVENT DATE: 201411
